FAERS Safety Report 8174301 (Version 2)
Quarter: 2013Q1

REPORT INFORMATION
  Report Type: Spontaneous
  Country: US (occurrence: US)
  Receive Date: 20111010
  Receipt Date: 20130129
  Transmission Date: 20140127
  Serious: Yes (Hospitalization)
  Sender: FDA-Public Use
  Company Number: US-GLAXOSMITHKLINE-A0791876A

PATIENT
  Age: 67 Year
  Sex: Male
  Weight: 83.6 kg

DRUGS (10)
  1. AVANDIA [Suspect]
     Indication: TYPE 2 DIABETES MELLITUS
     Dosage: 4MG TWICE PER DAY
     Route: 048
     Dates: start: 200303, end: 2008
  2. AVANDAMET [Suspect]
     Indication: TYPE 2 DIABETES MELLITUS
     Route: 048
     Dates: start: 20050428, end: 200505
  3. METFORMIN [Concomitant]
  4. GLIPIZIDE XL [Concomitant]
  5. METOPROLOL [Concomitant]
  6. LISINOPRIL [Concomitant]
  7. ASPIRIN [Concomitant]
  8. TOPROL [Concomitant]
  9. PLAVIX [Concomitant]
  10. LESCOL XL [Concomitant]

REACTIONS (3)
  - Acute myocardial infarction [Recovered/Resolved]
  - Ischaemic cardiomyopathy [Unknown]
  - Cardiac failure congestive [Unknown]
